FAERS Safety Report 9827622 (Version 1)
Quarter: 2014Q1

REPORT INFORMATION
  Report Type: Spontaneous
  Country: US (occurrence: None)
  Receive Date: 20140116
  Receipt Date: 20140116
  Transmission Date: 20141002
  Serious: Yes (Other)
  Sender: FDA-Public Use
  Company Number: None

PATIENT
  Age: 61 Year
  Sex: Male

DRUGS (2)
  1. TUDORZA PRESS AIR [Suspect]
     Indication: ASTHMA
     Dosage: 1 PUFF  TWICE DAILY INHALATION
     Route: 055
     Dates: start: 20131101, end: 20140111
  2. TUDORZA PRESS AIR [Suspect]
     Indication: CHRONIC OBSTRUCTIVE PULMONARY DISEASE
     Dosage: 1 PUFF  TWICE DAILY INHALATION
     Route: 055
     Dates: start: 20131101, end: 20140111

REACTIONS (3)
  - Drug ineffective [None]
  - Product contamination physical [None]
  - Device malfunction [None]
